FAERS Safety Report 7763106-5 (Version None)
Quarter: 2011Q3

REPORT INFORMATION
  Report Type: 
  Country: None (occurrence: None)
  Receive Date: 20110920
  Receipt Date: 20110908
  Transmission Date: 20111222
  Serious: Yes (Life-Threatening, Hospitalization, Disabling)
  Sender: FDA-Public Use
  Company Number: CA-JNJFOC-20110905039

PATIENT
  Sex: Female

DRUGS (2)
  1. REMICADE [Suspect]
     Indication: CROHN'S DISEASE
     Route: 042
     Dates: start: 20101001
  2. REMICADE [Suspect]
     Route: 042
     Dates: start: 20081101

REACTIONS (5)
  - LEG AMPUTATION [None]
  - COMA [None]
  - PERIPHERAL CIRCULATORY FAILURE [None]
  - LEGIONELLA INFECTION [None]
  - NERVE INJURY [None]
